FAERS Safety Report 8531561-9 (Version None)
Quarter: 2012Q3

REPORT INFORMATION
  Report Type: 
  Country: None (occurrence: None)
  Receive Date: 20120723
  Receipt Date: 20120711
  Transmission Date: 20120928
  Serious: Yes (Hospitalization)
  Sender: FDA-Public Use
  Company Number: SE-ROCHE-1087177

PATIENT
  Sex: Male

DRUGS (6)
  1. XELODA [Suspect]
     Indication: GASTRIC CANCER
     Dosage: TWO TIMES A DAY FOR 2 WEEKS 3 WEEKS AND 5 WEEKS
     Route: 048
     Dates: start: 20111109, end: 20120113
  2. PIPERACILLIN AND TAZOBACTAM [Concomitant]
     Dates: start: 20120708
  3. EPIRUBICIN HYDROCHLORIDE [Suspect]
     Indication: GASTRIC CANCER
     Dosage: EVERY 3 WEEKS
     Route: 042
     Dates: start: 20111109, end: 20111222
  4. OXALIPLATIN [Suspect]
     Indication: GASTRIC CANCER
     Dosage: EVERY 3 WEEKS
     Route: 042
     Dates: start: 20111109, end: 20111222
  5. CISPLATIN [Suspect]
     Indication: GASTRIC CANCER
     Dosage: EVERY WEEK FOR 5 WEEKS
     Route: 042
     Dates: start: 20120410, end: 20120417
  6. XELODA [Suspect]
     Dates: start: 20120410, end: 20120421

REACTIONS (3)
  - LABORATORY TEST ABNORMAL [None]
  - ABDOMINAL PAIN UPPER [None]
  - CHROMATURIA [None]
